FAERS Safety Report 19789876 (Version 1)
Quarter: 2021Q3

REPORT INFORMATION
  Report Type: Spontaneous
  Country: CA (occurrence: CA)
  Receive Date: 20210904
  Receipt Date: 20210904
  Transmission Date: 20211014
  Serious: Yes (Hospitalization, Other)
  Sender: FDA-Public Use
  Company Number: CA-TEVA-2021-CA-1948123

PATIENT
  Age: 44 Year
  Sex: Male

DRUGS (15)
  1. MAGNESIUM SULFATE. [Concomitant]
     Active Substance: MAGNESIUM SULFATE
  2. CANNABIDIOL [Interacting]
     Active Substance: CANNABIDIOL
     Indication: NEURALGIA
     Route: 065
  3. KETAMINE (UNKNOWN) [Interacting]
     Active Substance: KETAMINE
     Route: 042
  4. MARINOL [Interacting]
     Active Substance: DRONABINOL
     Indication: ANALGESIC THERAPY
     Route: 065
  5. ONDANSETRON [Concomitant]
     Active Substance: ONDANSETRON
  6. AMITRIPTYLINE [Suspect]
     Active Substance: AMITRIPTYLINE
     Indication: NEURALGIA
     Route: 065
  7. KETAMINE (UNKNOWN) [Interacting]
     Active Substance: KETAMINE
     Route: 042
  8. MIDAZOLAM(UNKNOWN) [Interacting]
     Active Substance: MIDAZOLAM HYDROCHLORIDE
     Indication: PROPHYLAXIS
     Route: 042
  9. LIDOCAINE. [Concomitant]
     Active Substance: LIDOCAINE
  10. ZOPICLONE [Interacting]
     Active Substance: ZOPICLONE
     Indication: NEURALGIA
     Route: 065
  11. KETAMINE (UNKNOWN) [Interacting]
     Active Substance: KETAMINE
     Indication: NEURALGIA
     Route: 042
  12. DULOXETINE SANDOZ [Interacting]
     Active Substance: DULOXETINE
     Indication: NEURALGIA
     Route: 065
  13. MARINOL [Interacting]
     Active Substance: DRONABINOL
     Route: 065
  14. TEMAZEPAM. [Interacting]
     Active Substance: TEMAZEPAM
     Indication: NEURALGIA
     Route: 065
  15. DEXAMETHASONE. [Concomitant]
     Active Substance: DEXAMETHASONE
     Route: 065

REACTIONS (4)
  - Drug level increased [Unknown]
  - Off label use [Unknown]
  - Behaviour disorder [Unknown]
  - Drug interaction [Unknown]
